FAERS Safety Report 10269403 (Version 8)
Quarter: 2014Q3

REPORT INFORMATION
  Report Type: Report from Study
  Country: PT (occurrence: PT)
  Receive Date: 20140701
  Receipt Date: 20140922
  Transmission Date: 20150326
  Serious: Yes (Hospitalization)
  Sender: FDA-Public Use
  Company Number: PT-ROCHE-1422153

PATIENT
  Age: 62 Year
  Sex: Male
  Weight: 79.7 kg

DRUGS (4)
  1. COVERSYL [Concomitant]
     Active Substance: PERINDOPRIL
     Indication: HYPERTENSION
     Route: 065
     Dates: start: 201102
  2. VISMODEGIB [Suspect]
     Active Substance: VISMODEGIB
     Indication: BASAL CELL CARCINOMA
     Dosage: DOSING AS PER PROTOCOL?LAST DOSE PRIOR TO SAE WAS ON 05/MAR/2014
     Route: 048
     Dates: start: 20130306, end: 20140305
  3. FOLICIL [Concomitant]
     Indication: MUSCLE SPASMS
     Route: 065
     Dates: start: 20140205
  4. MAGNESONA [Concomitant]
     Indication: MUSCLE SPASMS
     Dosage: 1500MG/10ML
     Route: 065
     Dates: start: 20131113

REACTIONS (1)
  - Shock haemorrhagic [Recovered/Resolved]

NARRATIVE: CASE EVENT DATE: 20140506
